FAERS Safety Report 6615019-X (Version None)
Quarter: 2010Q1

REPORT INFORMATION
  Report Type: 
  Country: None (occurrence: None)
  Receive Date: 20100305
  Receipt Date: 20080922
  Transmission Date: 20100710
  Serious: No
  Sender: FDA-Public Use
  Company Number: US-BAYER-200826448NA

PATIENT
  Sex: Female

DRUGS (1)
  1. YASMIN [Suspect]
     Indication: DRUG USE FOR UNKNOWN INDICATION
     Dosage: ONE TABLET PER DAY
     Route: 048
     Dates: start: 20080401

REACTIONS (2)
  - GASTRIC DISORDER [None]
  - OLIGOMENORRHOEA [None]
